FAERS Safety Report 9839029 (Version 2)
Quarter: 2014Q1

REPORT INFORMATION
  Report Type: Report from Study
  Country: DE (occurrence: DE)
  Receive Date: 20140123
  Receipt Date: 20140305
  Transmission Date: 20141002
  Serious: Yes (Hospitalization, Other)
  Sender: FDA-Public Use
  Company Number: DE-US-EMD SERONO, INC.-7263394

PATIENT
  Sex: Female
  Weight: 68 kg

DRUGS (4)
  1. SAIZEN [Suspect]
     Indication: GROWTH HORMONE DEFICIENCY
     Route: 058
     Dates: start: 20130615, end: 20131210
  2. MINIRIN RHINYLE [Concomitant]
     Indication: DIABETES INSIPIDUS
     Route: 045
     Dates: start: 20120328
  3. L-THYROXIN [Concomitant]
     Indication: SECONDARY HYPOTHYROIDISM
     Route: 048
     Dates: start: 20120225
  4. HYDROCORTISONE [Concomitant]
     Indication: ADRENAL INSUFFICIENCY
     Route: 048
     Dates: start: 20120504

REACTIONS (1)
  - Craniopharyngioma [Unknown]
